FAERS Safety Report 21623793 (Version 1)
Quarter: 2022Q4

REPORT INFORMATION
  Report Type: Spontaneous
  Country: US (occurrence: None)
  Receive Date: 20221120
  Receipt Date: 20221120
  Transmission Date: 20230112
  Serious: Yes (Death)
  Sender: FDA-Public Use
  Company Number: None

PATIENT
  Age: 73 Year
  Sex: Female
  Weight: 96.89 kg

DRUGS (15)
  1. BOSULIF [Suspect]
     Active Substance: BOSUTINIB MONOHYDRATE
     Indication: Philadelphia positive chronic myeloid leukaemia
     Dosage: FREQUENCY : DAILY;?
     Route: 048
  2. DRISDOL [Concomitant]
     Active Substance: ERGOCALCIFEROL
  3. EZETIMIBE [Concomitant]
     Active Substance: EZETIMIBE
  4. FAMOTIDINE [Concomitant]
     Active Substance: FAMOTIDINE
  5. GLYBURIDE [Concomitant]
     Active Substance: GLYBURIDE
  6. LIDOCAINE [Concomitant]
     Active Substance: LIDOCAINE
  7. LYRICA [Concomitant]
     Active Substance: PREGABALIN
  8. MIDODRINE [Concomitant]
     Active Substance: MIDODRINE
  9. NORTRIPTYLINE [Concomitant]
     Active Substance: NORTRIPTYLINE
  10. PAROXETINE [Concomitant]
     Active Substance: PAROXETINE
  11. ROPINIROLE [Concomitant]
     Active Substance: ROPINIROLE
  12. ROSUVASTATIN [Concomitant]
     Active Substance: ROSUVASTATIN
  13. TYLENOL [Concomitant]
     Active Substance: ACETAMINOPHEN
  14. VASCEPA [Concomitant]
     Active Substance: ICOSAPENT ETHYL
  15. VITAMIN B12 [Concomitant]
     Active Substance: CYANOCOBALAMIN

REACTIONS (1)
  - Death [None]
